FAERS Safety Report 12714580 (Version 2)
Quarter: 2016Q4

REPORT INFORMATION
  Report Type: Report from Study
  Country: JP (occurrence: JP)
  Receive Date: 20160905
  Receipt Date: 20161102
  Transmission Date: 20170207
  Serious: Yes (Hospitalization)
  Sender: FDA-Public Use
  Company Number: JP-JNJFOC-20160826451

PATIENT
  Age: 66 Year
  Sex: Male

DRUGS (16)
  1. NORVIR [Suspect]
     Active Substance: RITONAVIR
     Indication: HIV INFECTION
     Route: 048
     Dates: start: 20110525
  2. FLUMETHOLON [Concomitant]
     Active Substance: FLUOROMETHOLONE
     Indication: GLAUCOMA
     Route: 047
     Dates: start: 20150401
  3. TRUSOPT [Concomitant]
     Active Substance: DORZOLAMIDE HYDROCHLORIDE
     Indication: GLAUCOMA
     Route: 047
     Dates: start: 20150401
  4. LENDORMIN [Concomitant]
     Active Substance: BROTIZOLAM
     Indication: INSOMNIA
     Route: 047
     Dates: start: 20150401
  5. BRONUCK [Concomitant]
     Active Substance: BROMFENAC SODIUM
     Indication: CATARACT
     Route: 047
     Dates: start: 20160303
  6. PREZISTA [Suspect]
     Active Substance: DARUNAVIR ETHANOLATE
     Indication: HIV INFECTION
     Route: 048
     Dates: start: 20120629
  7. EPZICOM [Suspect]
     Active Substance: ABACAVIR SULFATE\LAMIVUDINE
     Indication: HIV INFECTION
     Route: 048
     Dates: start: 20070606, end: 20070614
  8. NORVIR [Suspect]
     Active Substance: RITONAVIR
     Indication: HIV INFECTION
     Route: 048
     Dates: start: 20070718, end: 20110524
  9. SODIUM RABEPRAZOLE [Concomitant]
     Active Substance: RABEPRAZOLE SODIUM
     Indication: GASTROOESOPHAGEAL REFLUX DISEASE
     Route: 048
     Dates: start: 20150908, end: 20150930
  10. CRAVIT [Concomitant]
     Active Substance: LEVOFLOXACIN
     Indication: CATARACT
     Route: 047
     Dates: start: 20151211
  11. PHENYLEPHRINE HYDROCHLORIDE. [Concomitant]
     Active Substance: PHENYLEPHRINE HYDROCHLORIDE
     Indication: CATARACT
     Route: 047
     Dates: start: 20160303
  12. LYRICA [Concomitant]
     Active Substance: PREGABALIN
     Indication: TRIGEMINAL NEURALGIA
     Route: 048
     Dates: start: 20150401
  13. BETAMETHASONE SODIUM PHOSPHATE [Concomitant]
     Active Substance: BETAMETHASONE SODIUM PHOSPHATE
     Indication: CATARACT
     Route: 047
     Dates: start: 20160303
  14. EPZICOM [Suspect]
     Active Substance: ABACAVIR SULFATE\LAMIVUDINE
     Indication: HIV INFECTION
     Route: 048
     Dates: start: 20120627
  15. XALATAN [Concomitant]
     Active Substance: LATANOPROST
     Indication: GLAUCOMA
     Route: 047
     Dates: start: 20150401
  16. MYDRIN-P [Concomitant]
     Active Substance: PHENYLEPHRINE HYDROCHLORIDE\TROPICAMIDE
     Indication: CATARACT
     Route: 047
     Dates: start: 20160303

REACTIONS (4)
  - Cataract [Recovering/Resolving]
  - Hypoalbuminaemia [Not Recovered/Not Resolved]
  - Glucose urine [Not Recovered/Not Resolved]
  - Hypoproteinaemia [Not Recovered/Not Resolved]

NARRATIVE: CASE EVENT DATE: 20150602
